FAERS Safety Report 24318468 (Version 1)
Quarter: 2024Q3

REPORT INFORMATION
  Report Type: Spontaneous
  Country: US (occurrence: US)
  Receive Date: 20240913
  Receipt Date: 20240913
  Transmission Date: 20241017
  Serious: No
  Sender: MERZ
  Company Number: US-MRZWEB-2024080000096

PATIENT
  Sex: Female

DRUGS (2)
  1. XEOMIN [Suspect]
     Active Substance: INCOBOTULINUMTOXINA
     Indication: Blepharospasm
  2. XEOMIN [Suspect]
     Active Substance: INCOBOTULINUMTOXINA
     Indication: Migraine

REACTIONS (4)
  - Depression [Unknown]
  - Anxiety [Unknown]
  - Therapeutic response decreased [Unknown]
  - Off label use [Unknown]
